FAERS Safety Report 12718592 (Version 1)
Quarter: 2016Q3

REPORT INFORMATION
  Report Type: Spontaneous
  Country: CH (occurrence: CH)
  Receive Date: 20160906
  Receipt Date: 20160906
  Transmission Date: 20161109
  Serious: Yes (Congenital Anomaly)
  Sender: FDA-Public Use
  Company Number: CH-ASTRAZENECA-2016SE93000

PATIENT
  Age: 0 Week
  Sex: Male
  Weight: 3.4 kg

DRUGS (2)
  1. PANTOPRAZOL [Suspect]
     Active Substance: PANTOPRAZOLE SODIUM
     Indication: GASTROOESOPHAGEAL REFLUX DISEASE
     Route: 064
     Dates: end: 20150202
  2. OMEPRAZOL [Suspect]
     Active Substance: OMEPRAZOLE
     Indication: GASTROOESOPHAGEAL REFLUX DISEASE
     Route: 064
     Dates: start: 20150203, end: 20150914

REACTIONS (3)
  - Limb malformation [Not Recovered/Not Resolved]
  - Congenital hand malformation [Not Recovered/Not Resolved]
  - Limb reduction defect [Not Recovered/Not Resolved]
